APPROVED DRUG PRODUCT: SAPROPTERIN DIHYDROCHLORIDE
Active Ingredient: SAPROPTERIN DIHYDROCHLORIDE
Strength: 500MG/PACKET
Dosage Form/Route: POWDER;ORAL
Application: A215798 | Product #001 | TE Code: AB
Applicant: DR REDDYS LABORATORIES LTD
Approved: May 13, 2022 | RLD: No | RS: No | Type: RX